FAERS Safety Report 20892417 (Version 1)
Quarter: 2022Q2

REPORT INFORMATION
  Report Type: Spontaneous
  Country: US (occurrence: US)
  Receive Date: 20220531
  Receipt Date: 20220531
  Transmission Date: 20220721
  Serious: No
  Sender: FDA-Public Use
  Company Number: US-BRISTOL-MYERS SQUIBB COMPANY-2022-032301

PATIENT
  Age: 73 Year
  Sex: Male

DRUGS (1)
  1. THALOMID [Suspect]
     Active Substance: THALIDOMIDE
     Indication: Pulmonary fibrosis
     Dosage: DOSE : 100MG;FREQ : EVERY NIGHT AT BEDTIME
     Route: 048

REACTIONS (2)
  - Cough [Unknown]
  - Intentional product use issue [Unknown]
